FAERS Safety Report 23061376 (Version 1)
Quarter: 2023Q4

REPORT INFORMATION
  Report Type: Spontaneous
  Country: US (occurrence: US)
  Receive Date: 20231013
  Receipt Date: 20231013
  Transmission Date: 20240109
  Serious: Yes (Hospitalization, Other)
  Sender: FDA-Public Use
  Company Number: US-CADILA HEALTHCARE LIMITED-US-ZYDUS-098838

PATIENT

DRUGS (4)
  1. BOSENTAN [Suspect]
     Active Substance: BOSENTAN
     Indication: Hypertensive heart disease
     Dosage: 125 MILLIGRAM
     Route: 048
     Dates: start: 20220203
  2. Pristiq Tab [Concomitant]
     Indication: Product used for unknown indication
     Dosage: 50 MILLIGRAM
  3. Child ASA CHW [Concomitant]
     Indication: Product used for unknown indication
     Dosage: 81 MILLIGRAM
  4. INDERAL LA [Concomitant]
     Active Substance: PROPRANOLOL HYDROCHLORIDE
     Indication: Product used for unknown indication
     Dosage: 120 MILLIGRAM

REACTIONS (5)
  - Atrial fibrillation [Unknown]
  - Heart rate increased [Unknown]
  - COVID-19 [Unknown]
  - Gait disturbance [Unknown]
  - Fall [Recovered/Resolved]

NARRATIVE: CASE EVENT DATE: 20230101
